FAERS Safety Report 6191005-1 (Version None)
Quarter: 2009Q2

REPORT INFORMATION
  Report Type: 
  Country: None (occurrence: None)
  Receive Date: 20090513
  Receipt Date: 20090501
  Transmission Date: 20091009
  Serious: Yes (Other)
  Sender: FDA-Public Use
  Company Number: 8044279

PATIENT
  Age: 23 Year
  Sex: Female
  Weight: 59 kg

DRUGS (4)
  1. CIMZIA [Suspect]
     Indication: CROHN'S DISEASE
     Dosage: 400 MG/ D  SC
     Route: 058
     Dates: start: 20090315, end: 20090325
  2. PRRDNISONE, 20 MG [Concomitant]
  3. ORTHO CYCLEN-28 [Concomitant]
  4. BENADRYL [Concomitant]

REACTIONS (11)
  - ABDOMINAL PAIN LOWER [None]
  - ACCESSORY SPLEEN [None]
  - BACK PAIN [None]
  - BLOOD UREA DECREASED [None]
  - CHEST PAIN [None]
  - HYPOAESTHESIA [None]
  - LUNG CONSOLIDATION [None]
  - PLEURITIC PAIN [None]
  - PNEUMONIA [None]
  - VASCULITIS [None]
  - WHITE BLOOD CELL COUNT DECREASED [None]
